FAERS Safety Report 6618978-4 (Version None)
Quarter: 2010Q1

REPORT INFORMATION
  Report Type: 
  Country: None (occurrence: None)
  Receive Date: 20100308
  Receipt Date: 20100204
  Transmission Date: 20100710
  Serious: No
  Sender: FDA-Public Use
  Company Number: US-BAYER-201011629BCC

PATIENT
  Age: 48 Year
  Sex: Female
  Weight: 95 kg

DRUGS (3)
  1. ALEVE (CAPLET) [Suspect]
     Indication: BACK PAIN
     Route: 048
     Dates: end: 20091001
  2. ALEVE (CAPLET) [Suspect]
     Dosage: TOTAL DAILY DOSE: 880 MG  UNIT DOSE: 220 MG
     Route: 048
     Dates: start: 20091001
  3. MOBIC [Concomitant]
     Route: 065

REACTIONS (1)
  - FLATULENCE [None]
